FAERS Safety Report 9972782 (Version 1)
Quarter: 2014Q1

REPORT INFORMATION
  Report Type: Spontaneous
  Country: AT (occurrence: AT)
  Receive Date: 20140306
  Receipt Date: 20140306
  Transmission Date: 20141002
  Serious: Yes (Death, Hospitalization)
  Sender: FDA-Public Use
  Company Number: AT-JNJFOC-20140214726

PATIENT
  Sex: Male

DRUGS (3)
  1. RISPERDAL [Suspect]
     Indication: PRODUCT USED FOR UNKNOWN INDICATION
     Route: 065
     Dates: start: 20140209, end: 20140211
  2. LAMICTAL [Concomitant]
     Indication: PRODUCT USED FOR UNKNOWN INDICATION
     Route: 065
     Dates: end: 20140211
  3. DOMINAL FORTE [Concomitant]
     Indication: PRODUCT USED FOR UNKNOWN INDICATION
     Route: 065
     Dates: start: 20140211

REACTIONS (7)
  - Psychotic disorder due to a general medical condition [Fatal]
  - Atrial fibrillation [Fatal]
  - Brain injury [Fatal]
  - Cardiac failure [Fatal]
  - Prerenal failure [Fatal]
  - Type 2 diabetes mellitus [Fatal]
  - Pneumonia pseudomonal [Fatal]
